FAERS Safety Report 9686551 (Version 1)
Quarter: 2013Q4

REPORT INFORMATION
  Report Type: Spontaneous
  Country: US (occurrence: US)
  Receive Date: 20131113
  Receipt Date: 20131113
  Transmission Date: 20140711
  Serious: No
  Sender: FDA-Public Use
  Company Number: US-ENDO PHARMACEUTICALS INC.-TRAZ20120003

PATIENT
  Sex: Female

DRUGS (4)
  1. TRAZODONE HYDROCHLORIDE TABLETS 50MG [Suspect]
     Indication: INSOMNIA
     Route: 048
     Dates: start: 1992, end: 20120322
  2. PERCOCET 10MG/325MG [Concomitant]
     Indication: PRODUCT USED FOR UNKNOWN INDICATION
     Dosage: 10/325 MG
     Route: 048
  3. FLEXERIL [Concomitant]
     Indication: PRODUCT USED FOR UNKNOWN INDICATION
     Route: 065
  4. PAXIL [Concomitant]
     Indication: PRODUCT USED FOR UNKNOWN INDICATION
     Route: 048
     Dates: start: 1992

REACTIONS (5)
  - Fall [Unknown]
  - Sensation of heaviness [Unknown]
  - Coordination abnormal [Unknown]
  - Dizziness [Unknown]
  - Somnolence [Unknown]
